FAERS Safety Report 10153526 (Version 3)
Quarter: 2015Q4

REPORT INFORMATION
  Report Type: Report from Study
  Country: NL (occurrence: NL)
  Receive Date: 20140505
  Receipt Date: 20151005
  Transmission Date: 20160304
  Serious: Yes (Other)
  Sender: FDA-Public Use
  Company Number: PHHY2014NL053836

PATIENT
  Sex: Female

DRUGS (2)
  1. TOBI [Suspect]
     Active Substance: TOBRAMYCIN
     Indication: BRONCHITIS
  2. TOBI [Suspect]
     Active Substance: TOBRAMYCIN
     Indication: SYSTEMIC LUPUS ERYTHEMATOSUS
     Dosage: (28 DAYS SCHEDULE)
     Route: 055

REACTIONS (2)
  - Oral fungal infection [Unknown]
  - Product use issue [Unknown]
